FAERS Safety Report 4913864-X (Version None)
Quarter: 2006Q1

REPORT INFORMATION
  Report Type: 
  Country: None (occurrence: None)
  Receive Date: 20060216
  Receipt Date: 20051031
  Transmission Date: 20060701
  Serious: Yes (Hospitalization)
  Sender: FDA-Public Use
  Company Number: US-MERCK-0511USA00315

PATIENT
  Age: 59 Year
  Sex: Female
  Weight: 123 kg

DRUGS (9)
  1. VIOXX [Suspect]
     Indication: ARTHRITIS
     Route: 048
     Dates: start: 20030831, end: 20040630
  2. CARISOPRODOL [Concomitant]
     Indication: PAIN
     Route: 065
  3. PREMARIN [Concomitant]
     Indication: HORMONE LEVEL ABNORMAL
     Route: 065
  4. NEURONTIN [Concomitant]
     Indication: NEURALGIA
     Route: 065
  5. METFORMIN [Concomitant]
     Indication: DIABETES MELLITUS
     Route: 065
  6. GLUCOTROL [Concomitant]
     Indication: DIABETES MELLITUS
     Route: 065
  7. PREVACID [Concomitant]
     Indication: GASTRIC DISORDER
     Route: 065
  8. LIDODERM [Concomitant]
     Indication: HERPES ZOSTER
     Route: 065
  9. HYDROCODONE HYDROCHLORIDE [Concomitant]
     Indication: PAIN
     Route: 065

REACTIONS (6)
  - CHEST PAIN [None]
  - DYSPNOEA [None]
  - EYE HAEMORRHAGE [None]
  - OPHTHALMIC FLUID DRAINAGE [None]
  - SLEEP APNOEA SYNDROME [None]
  - TRANSIENT ISCHAEMIC ATTACK [None]
